FAERS Safety Report 23875077 (Version 1)
Quarter: 2024Q2

REPORT INFORMATION
  Report Type: Spontaneous
  Country: US (occurrence: None)
  Receive Date: 20240520
  Receipt Date: 20240520
  Transmission Date: 20240716
  Serious: Yes (Hospitalization)
  Sender: FDA-Public Use
  Company Number: None

PATIENT
  Age: 71 Year
  Sex: Male

DRUGS (1)
  1. BACLOFEN [Suspect]
     Active Substance: BACLOFEN
     Indication: Pain
     Dates: start: 20210621, end: 20240506

REACTIONS (4)
  - Hypotension [None]
  - Toxicity to various agents [None]
  - Acute kidney injury [None]
  - Somnolence [None]

NARRATIVE: CASE EVENT DATE: 20240506
